FAERS Safety Report 6269709-1 (Version None)
Quarter: 2009Q3

REPORT INFORMATION
  Report Type: 
  Country: None (occurrence: None)
  Receive Date: 20090716
  Receipt Date: 20090706
  Transmission Date: 20100115
  Serious: Yes (Hospitalization)
  Sender: FDA-Public Use
  Company Number: EG-ELI_LILLY_AND_COMPANY-EG200907001331

PATIENT
  Age: 51 Year
  Sex: Male
  Weight: 45 kg

DRUGS (8)
  1. PEMETREXED [Suspect]
     Indication: NON-SMALL CELL LUNG CANCER
     Dosage: 500 MG/M2, UNK
     Route: 042
     Dates: start: 20090616
  2. PEMETREXED [Suspect]
     Dosage: 705 MG/M2, UNK
  3. CISPLATIN [Suspect]
     Indication: NON-SMALL CELL LUNG CANCER
     Dosage: 75 MG/M2, UNK
     Route: 042
     Dates: start: 20090616
  4. CISPLATIN [Suspect]
     Dosage: 105.75 MG/M2, UNK
  5. FOLIC ACID [Concomitant]
     Dosage: 500 UG, 2/D
     Route: 048
     Dates: start: 20090707
  6. VITAMIN B-12 [Concomitant]
     Dosage: 1000 UG, UNK
     Route: 030
     Dates: start: 20090614
  7. DEXAMETHASONE [Concomitant]
     Dosage: 4 MG, 2/D
     Route: 030
     Dates: start: 20090615, end: 20090617
  8. MOTILIUM [Concomitant]
     Indication: PROPHYLAXIS OF NAUSEA AND VOMITING
     Dates: start: 20090616, end: 20090618

REACTIONS (3)
  - ALTERED STATE OF CONSCIOUSNESS [None]
  - CONVULSION [None]
  - RESPIRATORY DISTRESS [None]
